FAERS Safety Report 8811895 (Version 1)
Quarter: 2012Q4

REPORT INFORMATION
  Report Type: Spontaneous
  Country: US (occurrence: None)
  Receive Date: 20120926
  Receipt Date: 20120926
  Transmission Date: 20130627
  Serious: Yes (Disabling)
  Sender: FDA-Public Use
  Company Number: None

PATIENT
  Sex: Female
  Weight: 53.98 kg

DRUGS (4)
  1. CIPRO [Suspect]
     Route: 048
     Dates: start: 20120625, end: 20120625
  2. CIPRO [Suspect]
     Route: 048
     Dates: start: 20120625, end: 20120625
  3. CIPRO [Suspect]
     Dates: start: 20120718, end: 20120723
  4. CIPRO [Suspect]
     Dates: start: 20120718, end: 20120723

REACTIONS (1)
  - Meniscus injury [None]
